FAERS Safety Report 11397520 (Version 1)
Quarter: 2015Q3

REPORT INFORMATION
  Report Type: Spontaneous
  Country: US (occurrence: US)
  Receive Date: 20150819
  Receipt Date: 20150819
  Transmission Date: 20151125
  Serious: Yes (Hospitalization, Other)
  Sender: FDA-Public Use
  Company Number: PHHY2015US099214

PATIENT
  Age: 1 Year
  Sex: Male

DRUGS (1)
  1. PROPRANOLOL [Suspect]
     Active Substance: PROPRANOLOL\PROPRANOLOL HYDROCHLORIDE
     Indication: LONG QT SYNDROME
     Dosage: 3.8 MG/KG, QD
     Route: 065

REACTIONS (3)
  - Ketoacidosis [Recovered/Resolved]
  - Hypotonia [Recovered/Resolved]
  - Hypoglycaemia [Recovered/Resolved]
